FAERS Safety Report 8963213 (Version 2)
Quarter: 2014Q2

REPORT INFORMATION
  Report Type: Report from Study
  Country: CA (occurrence: CA)
  Receive Date: 20121214
  Receipt Date: 20131018
  Transmission Date: 20141212
  Serious: Yes (Hospitalization)
  Sender: FDA-Public Use
  Company Number: CA-PFIZER INC-CA-WYE-H09842809

PATIENT
  Age: 46 Year
  Sex: Male
  Weight: 85 kg

DRUGS (101)
  1. SIROLIMUS [Suspect]
     Indication: PROPHYLAXIS AGAINST TRANSPLANT REJECTION
     Dosage: UNKNOWN
     Route: 065
  2. METHYLPREDNISOLONE SODIUM SUCCINATE [Suspect]
     Dosage: 125 MG, 1X/DAY
     Route: 042
     Dates: start: 20040828, end: 20040828
  3. METHYLPREDNISOLONE SODIUM SUCCINATE [Suspect]
     Dosage: 100 MG, 1X/DAY
     Route: 042
     Dates: start: 20040829, end: 20040829
  4. METHYLPREDNISOLONE SODIUM SUCCINATE [Suspect]
     Dosage: 80 MG, 1X/DAY
     Route: 042
     Dates: start: 20040830, end: 20040830
  5. METHYLPREDNISOLONE SODIUM SUCCINATE [Suspect]
     Dosage: 60 MG, 1X/DAY
     Route: 042
     Dates: start: 20040831, end: 20040831
  6. METHYLPREDNISOLONE SODIUM SUCCINATE [Suspect]
     Dosage: 40 MG, 1X/DAY
     Route: 042
     Dates: start: 20040901, end: 20040901
  7. METHYLPREDNISOLONE SODIUM SUCCINATE [Suspect]
     Dosage: 35 MG, 1X/DAY
     Route: 042
     Dates: start: 20040902, end: 20040902
  8. METHYLPREDNISOLONE SODIUM SUCCINATE [Suspect]
     Dosage: 30 MG, 1X/DAY
     Route: 048
     Dates: start: 20040903
  9. METHYLPREDNISOLONE SODIUM SUCCINATE [Suspect]
     Dosage: 187.5 MG, 2X/DAY
     Route: 042
     Dates: start: 20040914, end: 20040914
  10. METHYLPREDNISOLONE SODIUM SUCCINATE [Suspect]
     Dosage: 125 MG, 2X/DAY
     Route: 048
     Dates: start: 20040915
  11. METHYLPREDNISOLONE SODIUM SUCCINATE [Suspect]
     Dosage: 125 MG, 1X/DAY
     Route: 042
     Dates: start: 20040917, end: 20040918
  12. HYDROCORTISONE [Suspect]
     Dosage: 50MG ONE PER TOTAL
     Dates: start: 20041217
  13. DACLIZUMAB [Suspect]
     Indication: PROPHYLAXIS AGAINST TRANSPLANT REJECTION
     Dosage: 25 MG, UNK
     Route: 042
     Dates: start: 20040922, end: 20040922
  14. DACLIZUMAB [Suspect]
     Dosage: 100 MG ONCE
     Route: 042
     Dates: start: 20041206, end: 20041206
  15. TACROLIMUS [Suspect]
     Indication: PROPHYLAXIS AGAINST TRANSPLANT REJECTION
     Dosage: UNKNOWN
     Route: 065
  16. MYCOPHENOLATE MOFETIL [Suspect]
     Indication: PROPHYLAXIS AGAINST TRANSPLANT REJECTION
     Dosage: 1000.0 MG, 1X/DAY
     Route: 048
     Dates: start: 20040827, end: 20040827
  17. MYCOPHENOLATE MOFETIL [Suspect]
     Dosage: 1500 MG, 2X/DAY
     Route: 048
     Dates: start: 20040828
  18. MYCOPHENOLATE MOFETIL [Suspect]
     Dosage: 1500 MG, 1X/DAY
     Route: 042
     Dates: start: 20040830, end: 20040830
  19. MYCOPHENOLATE MOFETIL [Suspect]
     Dosage: 1000.0 MG, 2X/DAY
     Route: 048
     Dates: start: 20040906, end: 20040906
  20. MYCOPHENOLATE MOFETIL [Suspect]
     Dosage: 1000 MG, 2X/DAY
     Dates: start: 20040907
  21. MYCOPHENOLATE MOFETIL [Suspect]
     Dosage: 1125 MG, 2X/DAY
     Dates: start: 20040915, end: 20040915
  22. MYCOPHENOLATE MOFETIL [Suspect]
     Dosage: 1250 MG, 2X/DAY
     Dates: start: 20040916, end: 20040916
  23. MYCOPHENOLATE MOFETIL [Suspect]
     Dosage: 1125 MG, 2X/DAY
     Dates: start: 20040917, end: 20040917
  24. MYCOPHENOLATE MOFETIL [Suspect]
     Dosage: 875 MG, 2X/DAY
     Dates: start: 20040918, end: 20040918
  25. MYCOPHENOLATE MOFETIL [Suspect]
     Dosage: 750 MG, 1X/DAY
     Route: 048
     Dates: start: 20040919
  26. MYCOPHENOLATE MOFETIL [Suspect]
     Dosage: 1000 MG, 2X/DAY
     Route: 048
     Dates: start: 20040925
  27. MYCOPHENOLATE MOFETIL [Suspect]
     Dosage: 100 MG, 1X/DAY
     Route: 048
     Dates: start: 20041129
  28. MYCOPHENOLATE MOFETIL [Suspect]
     Dosage: 250 MG, 1X/DAY
     Route: 048
     Dates: start: 20041222, end: 20041222
  29. MYCOPHENOLATE MOFETIL [Suspect]
     Dosage: 250 MG, 2X/DAY
     Route: 048
     Dates: start: 20041223
  30. MYCOPHENOLATE MOFETIL [Suspect]
     Dosage: 500 MG, 2X/DAY
     Route: 048
     Dates: start: 20050107
  31. MYCOPHENOLATE MOFETIL [Suspect]
     Dosage: 625 MG, 2X/DAY
     Route: 048
     Dates: start: 20050128
  32. MYCOPHENOLATE MOFETIL [Suspect]
     Dosage: 1000 MG, 2X/DAY
     Route: 048
     Dates: start: 20050218
  33. MYCOPHENOLATE MOFETIL [Suspect]
     Indication: PROPHYLAXIS AGAINST TRANSPLANT REJECTION
     Dosage: 1000 MG, 2X/DAY IG
     Route: 050
     Dates: start: 20040831, end: 20040831
  34. MYCOPHENOLATE MOFETIL [Suspect]
     Dosage: 750 MG, 1X/DAY
     Dates: start: 20040901, end: 20040901
  35. MYCOPHENOLATE MOFETIL [Suspect]
     Indication: PROPHYLAXIS AGAINST TRANSPLANT REJECTION
     Dosage: 750 MG, 1X/DAY
     Route: 042
     Dates: start: 20040901, end: 20040901
  36. MYCOPHENOLATE MOFETIL [Suspect]
     Dosage: 750 MG, 2X/DAY
     Route: 042
     Dates: start: 20040902
  37. MYCOPHENOLATE MOFETIL [Suspect]
     Dosage: 875 MG, 2X/DAY
     Dates: start: 20040905, end: 20040905
  38. MYCOPHENOLATE MOFETIL [Suspect]
     Dosage: 1000 MG, 1X/DAY
     Dates: start: 20040906, end: 20040906
  39. CICLOSPORIN [Suspect]
     Indication: PROPHYLAXIS AGAINST TRANSPLANT REJECTION
     Dosage: 375 MG, 1X/DAY
     Route: 048
     Dates: start: 20040827, end: 20040830
  40. CICLOSPORIN [Suspect]
     Dosage: 287.5 MG, 2X/DAY
     Route: 048
     Dates: start: 20040904, end: 20040904
  41. CICLOSPORIN [Suspect]
     Dosage: 187.5 MG, 2X/DAY
     Route: 048
     Dates: start: 20040827, end: 20040831
  42. CICLOSPORIN [Suspect]
     Dosage: 137.5 MG, 2X/DAY
     Route: 048
     Dates: start: 20041005
  43. CICLOSPORIN [Suspect]
     Dosage: 143.75 MG, 2X/DAY
     Route: 048
     Dates: start: 20041109
  44. CICLOSPORIN [Suspect]
     Dosage: 162.5 MG, 2X/DAY
     Route: 048
     Dates: start: 20041203
  45. CICLOSPORIN [Suspect]
     Dosage: 137.5 MG, 2X/DAY
     Route: 048
     Dates: start: 20050315
  46. CICLOSPORIN [Suspect]
     Dosage: 131.25 MG, 2X/DAY
     Route: 048
     Dates: start: 20051220
  47. CICLOSPORIN [Suspect]
     Dosage: 125 MG, 2X/DAY
     Route: 048
     Dates: start: 20060112
  48. CICLOSPORIN [Suspect]
     Dosage: 112.5 MG, 2X/DAY
     Route: 048
     Dates: start: 20060303
  49. CICLOSPORIN [Suspect]
     Dosage: 87.5 MG, 2X/DAY
     Route: 048
     Dates: start: 20060601
  50. CICLOSPORIN [Suspect]
     Dosage: 75 MG, 2X/DAY
     Route: 048
     Dates: start: 20070306
  51. CICLOSPORIN [Suspect]
     Dosage: 300 MG, 1X/DAY
     Route: 048
     Dates: start: 20040903, end: 20040903
  52. CICLOSPORIN [Suspect]
     Indication: PROPHYLAXIS AGAINST TRANSPLANT REJECTION
     Dosage: 325 MG, 1X/DAY IG
     Route: 050
     Dates: start: 20040831, end: 20040901
  53. CICLOSPORIN [Suspect]
     Dosage: 300 MG, 1X/DAY
     Dates: start: 20040901, end: 20040903
  54. PREDNISONE [Suspect]
     Indication: PROPHYLAXIS AGAINST TRANSPLANT REJECTION
     Dosage: 27.5 MG, 1X/DAY
     Route: 048
     Dates: start: 20040904, end: 20040904
  55. PREDNISONE [Suspect]
     Dosage: 25 MG, 1X/DAY
     Route: 048
     Dates: start: 20040905, end: 20040905
  56. PREDNISONE [Suspect]
     Dosage: 22.5 MG, 1X/DAY
     Route: 048
     Dates: start: 20040906, end: 20040906
  57. PREDNISONE [Suspect]
     Dosage: 10 MG, 1X/DAY
     Route: 048
     Dates: start: 20040907
  58. PREDNISONE [Suspect]
     Dosage: 5 MG, 2X/DAY
     Route: 048
     Dates: start: 20041213
  59. PREDNISONE [Suspect]
     Dosage: 7.5 MG, 2X/DAY
     Route: 048
     Dates: start: 20041214
  60. PREDNISONE [Suspect]
     Dosage: 10 MG, 1X/DAY
     Route: 048
     Dates: start: 20041218
  61. PREDNISONE [Suspect]
     Dosage: 7.5 MG, 1X/DAY
     Route: 048
     Dates: start: 20050315
  62. PREDNISONE [Suspect]
     Dosage: 5 MG, 1X/DAY
     Route: 048
     Dates: start: 20050719
  63. ACEBUTOLOL HYDROCHLORIDE [Concomitant]
     Indication: HYPERTENSION
     Dosage: 100 MG, 2X/DAY
     Route: 048
     Dates: start: 20040831
  64. AMLODIPINE BESILATE [Concomitant]
     Dosage: 5 MG, 1X/DAY
     Route: 048
     Dates: start: 20040916, end: 20041101
  65. AMLODIPINE BESILATE [Concomitant]
     Dosage: 2.5 MG, 1X/DAY
     Route: 048
     Dates: start: 20041216
  66. AMLODIPINE BESILATE [Concomitant]
     Dosage: 7.5 MG, 1X/DAY
     Route: 048
     Dates: start: 20050125
  67. AMLODIPINE BESILATE [Concomitant]
     Dosage: 5 MG, 1X/DAY
     Route: 048
     Dates: start: 20050315
  68. CLONAZEPAM [Concomitant]
     Dosage: 2 MG, 1X/DAY
     Route: 048
     Dates: start: 20040829
  69. CLONIDINE [Concomitant]
     Dosage: 0.1 MG, EVERY 12 HOURS
     Route: 048
     Dates: start: 20040829, end: 20040925
  70. CLONIDINE [Concomitant]
     Dosage: 0.05 MG, AS NEEDED
     Dates: start: 20041130, end: 20041224
  71. CYANOCOBALAMIN [Concomitant]
     Dosage: 100 UG, 1X/DAY
     Route: 058
     Dates: start: 20041004
  72. CYANOCOBALAMIN [Concomitant]
     Dosage: 1000 UG, MONTHLY
     Route: 058
     Dates: start: 20041011, end: 20060302
  73. DIMENHYDRINATE [Concomitant]
     Dosage: 50 MG, 1X/DAY
     Route: 042
     Dates: start: 20040830, end: 20040830
  74. DIMENHYDRINATE [Concomitant]
     Dosage: 100 MG, SINGLE
     Dates: start: 20040831
  75. ENALAPRIL MALEATE [Concomitant]
     Indication: HYPERTENSION
     Dosage: 2.5 MG, 2X/DAY
     Route: 048
     Dates: start: 20041102, end: 20041213
  76. ENALAPRIL MALEATE [Concomitant]
     Dosage: 2.5 MG, 2X/DAY
     Route: 048
     Dates: start: 20050314
  77. ENALAPRIL MALEATE [Concomitant]
     Dosage: 3.75 MG, 2X/DAY
     Route: 048
     Dates: start: 20050509
  78. FOLIC ACID [Concomitant]
     Dosage: 5 MG, 1X/DAY
     Route: 048
     Dates: start: 20041129
  79. FUROSEMIDE [Concomitant]
     Dosage: 80 MG, 1X/DAY
     Route: 042
     Dates: start: 20040828, end: 20040828
  80. FUROSEMIDE [Concomitant]
     Dosage: 40 MG, 1X/DAY
     Route: 042
     Dates: start: 20040829
  81. LORAZEPAM [Concomitant]
     Dosage: 1 MG, AS NEEDED
     Route: 048
     Dates: start: 20040831
  82. MAGNESIUM SULFATE [Concomitant]
     Dosage: 2 G, SINGLE
     Route: 042
     Dates: start: 20040913
  83. MYCOSTATIN [Concomitant]
     Dosage: 5 ML, 4X/DAY
     Route: 048
     Dates: start: 20040828, end: 20041229
  84. ACETAMINOPHEN [Concomitant]
     Dosage: 975 MG, AS NEEDED
     Route: 048
     Dates: start: 20040902, end: 20040906
  85. ACETAMINOPHEN [Concomitant]
     Dosage: 500 MG, AS NEEDED
     Route: 048
     Dates: start: 20061201, end: 20061216
  86. RANITIDINE HYDROCHLORIDE [Concomitant]
     Dosage: 150 MG, 1X/DAY
     Route: 048
     Dates: start: 20040903, end: 20060302
  87. RISEDRONIC ACID [Concomitant]
     Indication: OSTEOPOROSIS
     Dosage: UNK
     Route: 048
     Dates: start: 20040924
  88. SODIUM ACID PHOSPHATE [Concomitant]
     Dosage: 500 MG, 2X/DAY
     Route: 048
     Dates: start: 20040920
  89. SODIUM POLYSTYRENE SULFONATE [Concomitant]
     Dosage: 30 G, SINGLE
     Route: 048
     Dates: start: 20040828
  90. SODIUM POLYSTYRENE SULFONATE [Concomitant]
     Dosage: 15 G, SINGLE
     Route: 048
     Dates: start: 20040912
  91. SODIUM POLYSTYRENE SULFONATE [Concomitant]
     Dosage: 15 G, SINGLE
     Route: 048
     Dates: start: 20040915
  92. SODIUM POLYSTYRENE SULFONATE [Concomitant]
     Dosage: 15 G, SINGLE
     Route: 048
     Dates: start: 20040920
  93. SEPTRA [Concomitant]
     Indication: INFECTION PROPHYLAXIS
     Dosage: 80 MG, 2X/WEEK
     Route: 048
     Dates: start: 20040902, end: 20041129
  94. SEPTRA [Concomitant]
     Dosage: 80 MG, 2X/WEEK
     Dates: start: 20041213, end: 20051129
  95. BUPIVACAINE HYDROCHLORIDE [Concomitant]
     Dosage: 8 ML, EVERY HOUR
     Route: 042
     Dates: start: 20040828, end: 20040901
  96. FAMOTIDINE [Concomitant]
     Dosage: 20 MG, 1X/DAY
     Route: 042
     Dates: start: 20040828, end: 20040903
  97. HEPARIN [Concomitant]
     Dosage: 5000 IU, 2X/DAY
     Route: 058
     Dates: start: 20040828, end: 20040913
  98. INSULINE NORDISK [Concomitant]
     Dosage: 5 IU, AS NEEDED
     Dates: start: 20040828, end: 20040925
  99. MAXERAN [Concomitant]
     Dosage: 10 MG, 1X/DAY
     Route: 042
     Dates: start: 20040828, end: 20040830
  100. MORPHINE [Concomitant]
     Dosage: 10 MG, AS NEEDED
     Route: 058
     Dates: start: 20040831, end: 20040902
  101. OXYCODONE [Concomitant]
     Dosage: 10 MG, AS NEEDED
     Route: 048
     Dates: start: 20040905, end: 20040922

REACTIONS (4)
  - Hydronephrosis [Recovered/Resolved]
  - Lymphocele [Not Recovered/Not Resolved]
  - Leukopenia [Not Recovered/Not Resolved]
  - Ureteric stenosis [Recovered/Resolved]
